FAERS Safety Report 11882397 (Version 1)
Quarter: 2015Q4

REPORT INFORMATION
  Report Type: Spontaneous
  Country: US (occurrence: US)
  Receive Date: 20151231
  Receipt Date: 20151231
  Transmission Date: 20160305
  Serious: Yes (Hospitalization, Other)
  Sender: FDA-Public Use
  Company Number: US-BAYER-2015-494150

PATIENT
  Age: 84 Year
  Sex: Male

DRUGS (3)
  1. IBUPROFEN. [Interacting]
     Active Substance: IBUPROFEN
  2. WARFARIN [Interacting]
     Active Substance: WARFARIN
  3. ACETYLSALICYLIC ACID({=100 MG) [Suspect]
     Active Substance: ASPIRIN

REACTIONS (4)
  - Plasmacytoma [Recovering/Resolving]
  - Gastric ulcer [Recovered/Resolved]
  - Labelled drug-drug interaction medication error [None]
  - Melaena [Recovered/Resolved]
